FAERS Safety Report 20485827 (Version 1)
Quarter: 2022Q1

REPORT INFORMATION
  Report Type: Spontaneous
  Country: US (occurrence: US)
  Receive Date: 20220217
  Receipt Date: 20220217
  Transmission Date: 20220423
  Serious: Yes (Death, Hospitalization)
  Sender: FDA-Public Use
  Company Number: US-PFIZER INC-202200256187

PATIENT
  Age: 32 Year
  Sex: Female

DRUGS (8)
  1. METAXALONE [Suspect]
     Active Substance: METAXALONE
     Dosage: UNK
     Route: 048
  2. LORAZEPAM [Suspect]
     Active Substance: LORAZEPAM
     Dosage: UNK
     Route: 048
  3. PROPRANOLOL HYDROCHLORIDE [Suspect]
     Active Substance: PROPRANOLOL HYDROCHLORIDE
     Dosage: UNK
     Route: 048
  4. DIAZEPAM [Suspect]
     Active Substance: DIAZEPAM
     Dosage: UNK
     Route: 048
  5. OXAZEPAM [Suspect]
     Active Substance: OXAZEPAM
     Dosage: UNK
     Route: 048
  6. NORDAZEPAM [Suspect]
     Active Substance: NORDAZEPAM
     Dosage: UNK
     Route: 048
  7. MIDAZOLAM [Suspect]
     Active Substance: MIDAZOLAM
     Dosage: UNK
     Route: 048
  8. TEMAZEPAM [Suspect]
     Active Substance: TEMAZEPAM
     Dosage: UNK
     Route: 048

REACTIONS (2)
  - Cardiac arrest [Fatal]
  - Respiratory arrest [Fatal]

NARRATIVE: CASE EVENT DATE: 20200101
